FAERS Safety Report 8818671 (Version 1)
Quarter: 2012Q4

REPORT INFORMATION
  Report Type: 
  Country: BR (occurrence: BR)
  Receive Date: 20121001
  Receipt Date: 20121001
  Transmission Date: 20130627
  Serious: Yes (Death, Hospitalization)
  Sender: FDA-Public Use
  Company Number: PHHY2012BR084464

PATIENT
  Age: 61 Year
  Sex: Male

DRUGS (6)
  1. ENALAPRIL [Suspect]
     Dosage: 40 mg, QD
     Route: 065
  2. LITHIUM CARBONATE [Interacting]
     Indication: BIPOLAR DISORDER
     Dosage: 600 mg, QD
     Route: 065
  3. INSULIN [Concomitant]
  4. METFORMIN [Concomitant]
     Dosage: 850 mg, TID
  5. THYROXINE [Concomitant]
     Dosage: 50 ug per day
  6. ATENOLOL [Concomitant]
     Dosage: 100 mg per day

REACTIONS (20)
  - Cardio-respiratory arrest [Fatal]
  - Pulseless electrical activity [Fatal]
  - Haemorrhage [Fatal]
  - Toxicity to various agents [Unknown]
  - Metabolic encephalopathy [Unknown]
  - Somnolence [Unknown]
  - Confusional state [Unknown]
  - Depressed level of consciousness [Unknown]
  - Arrhythmia [Unknown]
  - Muscle rigidity [Unknown]
  - Atrial fibrillation [Unknown]
  - Electrocardiogram ST segment elevation [Unknown]
  - Rales [Unknown]
  - Hypotension [Unknown]
  - Ventricular tachycardia [Unknown]
  - Bradycardia [Unknown]
  - Bradyarrhythmia [Unknown]
  - Fatigue [Unknown]
  - Drug interaction [Unknown]
  - Accidental overdose [Unknown]
